APPROVED DRUG PRODUCT: BUPROPION HYDROCHLORIDE
Active Ingredient: BUPROPION HYDROCHLORIDE
Strength: 150MG
Dosage Form/Route: TABLET, EXTENDED RELEASE;ORAL
Application: A077284 | Product #001
Applicant: PH HEALTH LTD
Approved: Dec 14, 2006 | RLD: No | RS: No | Type: DISCN